FAERS Safety Report 8573757-6 (Version None)
Quarter: 2012Q3

REPORT INFORMATION
  Report Type: 
  Country: None (occurrence: None)
  Receive Date: 20120806
  Receipt Date: 20120731
  Transmission Date: 20120928
  Serious: Yes (Death)
  Sender: FDA-Public Use
  Company Number: JP-GLAXOSMITHKLINE-B0805405A

PATIENT
  Sex: Female
  Weight: 62 kg

DRUGS (11)
  1. PREDNISOLONE [Concomitant]
     Dosage: 7.5MG PER DAY
     Route: 048
     Dates: start: 20111216
  2. PREDNISOLONE [Concomitant]
     Dosage: 10MG PER DAY
     Route: 048
     Dates: start: 20111202
  3. PREDNISOLONE [Concomitant]
     Dosage: 30MG PER DAY
     Route: 048
     Dates: start: 20120518, end: 20120601
  4. METHYLPREDNISOLONE SODIUM SUCCINATE [Concomitant]
     Indication: IDIOPATHIC THROMBOCYTOPENIC PURPURA
     Dosage: 1G PER DAY
     Dates: start: 20120526, end: 20120528
  5. REVOLADE [Suspect]
     Indication: IDIOPATHIC THROMBOCYTOPENIC PURPURA
     Dosage: 12.5MG PER DAY
     Route: 048
     Dates: start: 20111107, end: 20111220
  6. PREDNISOLONE [Concomitant]
     Indication: IDIOPATHIC THROMBOCYTOPENIC PURPURA
     Dosage: 20MG PER DAY
     Route: 048
  7. PREDNISOLONE [Concomitant]
     Dosage: 15MG PER DAY
     Route: 048
     Dates: start: 20111118
  8. PREDNISOLONE [Concomitant]
     Dosage: 7MG PER DAY
     Route: 048
     Dates: start: 20120210
  9. REVOLADE [Suspect]
     Dosage: 12.5MG PER DAY
     Route: 048
     Dates: start: 20120511, end: 20120601
  10. PREDNISOLONE [Concomitant]
     Dosage: 10MG PER DAY
     Route: 048
     Dates: start: 20120511, end: 20120517
  11. REVOLADE [Suspect]
     Dosage: 12.5MG TWICE PER DAY
     Route: 048
     Dates: start: 20111221, end: 20120510

REACTIONS (2)
  - SMALL CELL LUNG CANCER STAGE UNSPECIFIED [None]
  - METASTASES TO BONE MARROW [None]
